FAERS Safety Report 9367053 (Version 1)
Quarter: 2013Q2

REPORT INFORMATION
  Report Type: Spontaneous
  Country: AU (occurrence: AU)
  Receive Date: 20130625
  Receipt Date: 20130625
  Transmission Date: 20140414
  Serious: Yes (Death)
  Sender: FDA-Public Use
  Company Number: AU-BAXTER-2013BAX022735

PATIENT
  Age: 76 Year
  Sex: Male

DRUGS (2)
  1. DIANEAL PD-4 PERITONEAL DIALYSIS SOLUTION WITH 1.5% W_V GLUCOSE LOW CA [Suspect]
     Indication: PERITONEAL DIALYSIS
     Route: 033
     Dates: end: 20130614
  2. DIANEAL PD-4 PERITONEAL DIALYSIS SOLUTION WITH 2.5% W_V GLUCOSE LOW CA [Suspect]
     Indication: PERITONEAL DIALYSIS
     Route: 033
     Dates: end: 20130614

REACTIONS (1)
  - Death [Fatal]
